FAERS Safety Report 11839406 (Version 1)
Quarter: 2015Q4

REPORT INFORMATION
  Report Type: Spontaneous
  Country: US (occurrence: None)
  Receive Date: 20151215
  Receipt Date: 20151215
  Transmission Date: 20160305
  Serious: No
  Sender: FDA-Public Use
  Company Number: None

PATIENT
  Age: 43 Year
  Sex: Female

DRUGS (1)
  1. IBRANCE [Suspect]
     Active Substance: PALBOCICLIB
     Indication: PRODUCT USED FOR UNKNOWN INDICATION
     Route: 048
     Dates: start: 20151127, end: 20151211

REACTIONS (4)
  - Therapy cessation [None]
  - Neutropenia [None]
  - Leukopenia [None]
  - Therapy change [None]

NARRATIVE: CASE EVENT DATE: 20151211
